FAERS Safety Report 7443242-3 (Version None)
Quarter: 2011Q2

REPORT INFORMATION
  Report Type: 
  Country: None (occurrence: None)
  Receive Date: 20110428
  Receipt Date: 20110420
  Transmission Date: 20111010
  Serious: Yes (Life-Threatening)
  Sender: FDA-Public Use
  Company Number: B0715046A

PATIENT
  Sex: Male
  Weight: 60 kg

DRUGS (6)
  1. KYTRIL [Concomitant]
     Dosage: 3MG PER DAY
     Route: 042
     Dates: start: 20091006, end: 20091006
  2. OMEPRAL [Concomitant]
     Dosage: 20MG PER DAY
     Route: 048
     Dates: start: 20091001, end: 20091130
  3. DIFLUCAN [Concomitant]
     Dosage: 3MG PER DAY
     Route: 048
     Dates: start: 20091001, end: 20091130
  4. ALKERAN [Suspect]
     Indication: STEM CELL TRANSPLANT
     Dosage: 200MGM2 PER DAY
     Route: 042
     Dates: start: 20091006, end: 20091006
  5. VALTREX [Concomitant]
     Dosage: 1000MG PER DAY
     Route: 048
     Dates: start: 20091001, end: 20091130
  6. CRAVIT [Concomitant]
     Dosage: 500MG PER DAY
     Route: 048
     Dates: start: 20091001, end: 20091130

REACTIONS (1)
  - FEBRILE NEUTROPENIA [None]
